FAERS Safety Report 4722284-2 (Version None)
Quarter: 2005Q3

REPORT INFORMATION
  Report Type: 
  Country: None (occurrence: None)
  Receive Date: 20050722
  Receipt Date: 20041008
  Transmission Date: 20060218
  Serious: No
  Sender: FDA-Public Use
  Company Number: US-GLAXOSMITHKLINE-A0529095A

PATIENT
  Sex: Female

DRUGS (4)
  1. AVANDIA [Suspect]
     Dosage: 10MG PER DAY
     Route: 048
     Dates: start: 20040917
  2. METFORMIN [Concomitant]
  3. GLIPIZIDE [Concomitant]
  4. NEXIUM [Concomitant]

REACTIONS (5)
  - HEADACHE [None]
  - HOT FLUSH [None]
  - NAUSEA [None]
  - OVERDOSE [None]
  - SINUSITIS [None]
